FAERS Safety Report 8298493-5 (Version None)
Quarter: 2012Q2

REPORT INFORMATION
  Report Type: 
  Country: None (occurrence: None)
  Receive Date: 20120419
  Receipt Date: 20111230
  Transmission Date: 20120825
  Serious: No
  Sender: FDA-Public Use
  Company Number: US-ABBOTT-12P-163-0888392-00

PATIENT
  Sex: Female

DRUGS (3)
  1. LUPRON DEPOT-PED [Suspect]
     Indication: PRECOCIOUS PUBERTY
  2. LUPRON DEPOT-PED [Suspect]
  3. LUPRON DEPOT-PED [Suspect]

REACTIONS (2)
  - NO THERAPEUTIC RESPONSE [None]
  - MENSTRUAL DISORDER [None]
